FAERS Safety Report 11926644 (Version 4)
Quarter: 2016Q1

REPORT INFORMATION
  Report Type: Report from Study
  Country: BR (occurrence: BR)
  Receive Date: 20160119
  Receipt Date: 20160201
  Transmission Date: 20160526
  Serious: Yes (Hospitalization, Other)
  Sender: FDA-Public Use
  Company Number: BR-GLAXOSMITHKLINE-BR2016002222

PATIENT
  Age: 94 Year
  Sex: Male
  Weight: 68 kg

DRUGS (1)
  1. UMECLIDINIUM BR+VILANTEROL TRIFENATATE [Suspect]
     Active Substance: UMECLIDINIUM BROMIDE\VILANTEROL TRIFENATATE
     Indication: CHRONIC OBSTRUCTIVE PULMONARY DISEASE
     Dosage: 62.5/25 UG QD
     Route: 055
     Dates: start: 20151210

REACTIONS (1)
  - Respiratory tract infection [Recovering/Resolving]

NARRATIVE: CASE EVENT DATE: 20160105
